FAERS Safety Report 11916020 (Version 1)
Quarter: 2016Q1

REPORT INFORMATION
  Report Type: Spontaneous
  Country: US (occurrence: None)
  Receive Date: 20160113
  Receipt Date: 20160113
  Transmission Date: 20160526
  Serious: No
  Sender: FDA-Public Use
  Company Number: None

PATIENT
  Age: 38 Year
  Sex: Male

DRUGS (1)
  1. ENBREL [Suspect]
     Active Substance: ETANERCEPT
     Indication: RHEUMATOID ARTHRITIS
     Route: 058
     Dates: start: 20141211, end: 20160112

REACTIONS (4)
  - Device issue [None]
  - Drug ineffective [None]
  - Joint swelling [None]
  - Product substitution issue [None]

NARRATIVE: CASE EVENT DATE: 20150910
